FAERS Safety Report 6543337-2 (Version None)
Quarter: 2010Q1

REPORT INFORMATION
  Report Type: 
  Country: None (occurrence: None)
  Receive Date: 20100120
  Receipt Date: 20100108
  Transmission Date: 20100710
  Serious: Yes (Other)
  Sender: FDA-Public Use
  Company Number: US-JNJCH-2010000192

PATIENT
  Sex: Female

DRUGS (1)
  1. LISTERINE WHITENING VIBRANT WHITE PRE-BRUSH RINSE [Suspect]
     Indication: DENTAL CARE
     Dosage: TEXT:UNSPECIFIED ACCORDING TO DIRECTIONS
     Route: 048

REACTIONS (2)
  - SENSITIVITY OF TEETH [None]
  - TOOTHACHE [None]
